FAERS Safety Report 7433995-2 (Version None)
Quarter: 2011Q2

REPORT INFORMATION
  Report Type: 
  Country: None (occurrence: None)
  Receive Date: 20110420
  Receipt Date: 20110420
  Transmission Date: 20111010
  Serious: Yes (Other)
  Sender: FDA-Public Use
  Company Number: None

PATIENT
  Age: 58 Year
  Sex: Female
  Weight: 95.2554 kg

DRUGS (2)
  1. AMIODARONE HCL [Suspect]
     Indication: ATRIAL FIBRILLATION
     Dosage: 1 TABLET 400 MG 2 TIMES DAY/MOUTH OTHER
     Route: 050
     Dates: start: 20110322, end: 20110408
  2. AMIODARONE HCL [Suspect]
     Indication: ATRIAL FLUTTER
     Dosage: 1 TABLET 400 MG 2 TIMES DAY/MOUTH OTHER
     Route: 050
     Dates: start: 20110322, end: 20110408

REACTIONS (2)
  - VITREOUS FLOATERS [None]
  - PHOTOPSIA [None]
